FAERS Safety Report 8328597 (Version 3)
Quarter: 2013Q2

REPORT INFORMATION
  Report Type: Spontaneous
  Country: US (occurrence: None)
  Receive Date: 20111130
  Receipt Date: 20121130
  Transmission Date: 20140414
  Serious: Yes (Other)
  Sender: FDA-Public Use
  Company Number: PHHY2011US50765

PATIENT
  Age: 84 Year
  Sex: Female

DRUGS (31)
  1. TEKTURNA [Suspect]
     Dosage: HALF THE USUAL DOSE
     Route: 048
     Dates: start: 20110526
  2. LEVOXYL [Concomitant]
  3. REQUIP (ROPINIROLE HYDROCHLORIDE) [Concomitant]
  4. ALBUTEROL SULFATE [Concomitant]
  5. AZOPT [Concomitant]
  6. ALPHAGAN P [Concomitant]
  7. CYANOCOBALAMIN W/FOLIC ACID/PYRIDOXINE (CYANOCOBALAMIN, FOLIC ACID, PYRIDOXINE) [Concomitant]
  8. VITAMIN B COMPLEX [Concomitant]
  9. VITAMIN C [Concomitant]
  10. VITAMIN D (ERGOCALCIFEROL) [Concomitant]
  11. CALCIUM CARBONATE [Concomitant]
  12. MAGNESIUM (MAGNESIUM) [Concomitant]
  13. FISH OIL (FISH OIL) [Concomitant]
  14. COQ10 (UBIDECARENONE) [Concomitant]
  15. ARGININE (ARGININE) [Concomitant]
  16. GRAPE SEED EXTRACT (VITIS VINIFERA EXTRACT) [Concomitant]
  17. KLONADINE (KLONADINE) [Concomitant]
  18. LOVAXOL (LOVAXOL) [Concomitant]
  19. BRIMONIDINE (BRIMONIDINE) [Concomitant]
  20. LUMIGAN (BIMATOPROST) [Concomitant]
  21. VITAMINS (ASCORBIC ACID, ERGOCALCIFEROL, NICOTINAMIDE, RETINOL, RIBOFLAVIN, THIAMINE HYDROCHLORIDE) [Concomitant]
  22. FLONASE (FLUTICASONE PROPIONATE) [Concomitant]
  23. CALBANEX (CALBANEX) [Concomitant]
  24. GLUCOSAMINE HYDROCHLORIDE (GLUCOSAMINE HYDROCHLORIDE) [Concomitant]
  25. CAVAN X [Concomitant]
  26. PREDNISOLONE (PREDNISOLONE) [Concomitant]
  27. VIGAMOX (MOXIFLOXACIN HYDROCHLORIDE) [Concomitant]
  28. MURO 128 (SODIUM CHLORIDE) [Concomitant]
  29. CHONDROITIN SULFATE (CHONDROITIN SULFATE) [Concomitant]
  30. PRIMROSE OIL [Concomitant]
  31. MIACALCIN (SYNETHETIC SALMON CALCITONIN) [Suspect]
     Route: 055

REACTIONS (12)
  - DIZZINESS [None]
  - NAUSEA [None]
  - INCORRECT DOSE ADMINISTERED [None]
  - HYPERSENSITIVITY [None]
  - Drug hypersensitivity [None]
  - Musculoskeletal pain [None]
  - Back pain [None]
  - Arthralgia [None]
  - Joint injury [None]
  - Musculoskeletal stiffness [None]
  - Fatigue [None]
  - Rash [None]
